FAERS Safety Report 6143559-9 (Version None)
Quarter: 2009Q2

REPORT INFORMATION
  Report Type: 
  Country: None (occurrence: None)
  Receive Date: 20090403
  Receipt Date: 20090324
  Transmission Date: 20091009
  Serious: Yes (Other)
  Sender: FDA-Public Use
  Company Number: US-PFIZER INC-2009188492

PATIENT

DRUGS (1)
  1. DEPO-MEDROL [Suspect]

REACTIONS (1)
  - INCORRECT ROUTE OF DRUG ADMINISTRATION [None]
